FAERS Safety Report 10014125 (Version 2)
Quarter: 2014Q2

REPORT INFORMATION
  Report Type: Report from Study
  Country: US (occurrence: US)
  Receive Date: 20140317
  Receipt Date: 20140502
  Transmission Date: 20141212
  Serious: Yes (Hospitalization)
  Sender: FDA-Public Use
  Company Number: US-BIOGENIDEC-2014BI022656

PATIENT
  Sex: Female

DRUGS (1)
  1. AVONEX [Suspect]
     Indication: MULTIPLE SCLEROSIS
     Route: 030
     Dates: start: 20101210

REACTIONS (4)
  - Loss of consciousness [Recovered/Resolved]
  - Skin lesion [Recovered/Resolved]
  - Multiple sclerosis relapse [Recovered/Resolved]
  - Transient ischaemic attack [Unknown]
